FAERS Safety Report 9232264 (Version 6)
Quarter: 2013Q3

REPORT INFORMATION
  Report Type: Spontaneous
  Country: US (occurrence: US)
  Receive Date: 20130415
  Receipt Date: 20130726
  Transmission Date: 20140515
  Serious: Yes (Hospitalization, Other)
  Sender: FDA-Public Use
  Company Number: US-009507513-1202USA00030

PATIENT
  Sex: Female
  Weight: 75.74 kg

DRUGS (4)
  1. FOSAMAX [Suspect]
     Indication: OSTEOPOROSIS
     Dosage: UNK UNK,
     Route: 048
     Dates: start: 1995, end: 200804
  2. FOSAMAX [Suspect]
     Dosage: 70 MG, QW
     Route: 048
  3. HORMONES (UNSPECIFIED) [Concomitant]
  4. LOPRESSOR [Concomitant]
     Indication: HYPERTENSION

REACTIONS (56)
  - Femur fracture [Unknown]
  - Intramedullary rod insertion [Unknown]
  - Rib fracture [Unknown]
  - Fractured ischium [Unknown]
  - Wrist fracture [Unknown]
  - Cardiac pacemaker insertion [Unknown]
  - Pulmonary contusion [Unknown]
  - Pleural effusion [Unknown]
  - Pneumothorax [Unknown]
  - Rib fracture [Unknown]
  - Fracture reduction [Unknown]
  - Pubis fracture [Unknown]
  - Upper gastrointestinal haemorrhage [Unknown]
  - Gastric ulcer [Unknown]
  - Hypothyroidism [Unknown]
  - Wrist fracture [Unknown]
  - Tooth extraction [Unknown]
  - Hyperlipidaemia [Unknown]
  - Atrial fibrillation [Unknown]
  - Depression [Unknown]
  - Vertebral column mass [Unknown]
  - Bone scan abnormal [Unknown]
  - Hypochromic anaemia [Unknown]
  - Hiatus hernia [Unknown]
  - Haemorrhoids [Unknown]
  - Osteoarthritis [Unknown]
  - Sick sinus syndrome [Unknown]
  - Spinal column stenosis [Unknown]
  - Anxiety [Unknown]
  - Upper limb fracture [Unknown]
  - Foot fracture [Unknown]
  - Orthostatic hypotension [Unknown]
  - Diverticulum [Unknown]
  - Left ventricular hypertrophy [Unknown]
  - Mitral valve incompetence [Unknown]
  - Dilatation atrial [Unknown]
  - Tricuspid valve incompetence [Unknown]
  - Pulmonary hypertension [Unknown]
  - Abdominal wall haematoma [Unknown]
  - Upper respiratory tract infection [Unknown]
  - Rib fracture [Unknown]
  - Nephritis [Unknown]
  - Thoracic vertebral fracture [Unknown]
  - Bone scan abnormal [Unknown]
  - Fractured sacrum [Unknown]
  - Sinusitis [Unknown]
  - Facial bones fracture [Unknown]
  - Coagulopathy [Unknown]
  - Haemorrhoid operation [Unknown]
  - Haemorrhagic anaemia [Unknown]
  - Hypokalaemia [Unknown]
  - Heart rate abnormal [Unknown]
  - Oedema peripheral [Unknown]
  - Gastrooesophageal reflux disease [Unknown]
  - Gastritis [Unknown]
  - Back pain [Not Recovered/Not Resolved]
